FAERS Safety Report 5586828-3 (Version None)
Quarter: 2007Q4

REPORT INFORMATION
  Report Type: 
  Country: None (occurrence: None)
  Receive Date: 20071205
  Receipt Date: 20070419
  Transmission Date: 20080405
  Serious: Yes (Disabling)
  Sender: FDA-Public Use
  Company Number: HQWYE803524APR07

PATIENT
  Age: 62 Year
  Sex: Female
  Weight: 97.61 kg

DRUGS (7)
  1. EFFEXOR XR [Suspect]
     Indication: BACK PAIN
     Dosage: 37.5 MG 1 X PER 1 DAY, ORAL
     Route: 048
     Dates: start: 20060823, end: 20061001
  2. PERCOCET (OXYCODONE HYDROCHLORIDE/OXYODONE TEREPHTHALATE/PARACETAMOL) [Concomitant]
  3. OXYCONTIN [Concomitant]
  4. VALIUM [Concomitant]
  5. COUMADIN [Concomitant]
  6. DOXYCYCLINE [Concomitant]
  7. PREVACID [Concomitant]

REACTIONS (5)
  - ABNORMAL BEHAVIOUR [None]
  - AGGRESSION [None]
  - DEAFNESS [None]
  - EMOTIONAL DISORDER [None]
  - SOMNOLENCE [None]
